FAERS Safety Report 24033478 (Version 1)
Quarter: 2024Q3

REPORT INFORMATION
  Report Type: Spontaneous
  Country: US (occurrence: US)
  Receive Date: 20240701
  Receipt Date: 20240701
  Transmission Date: 20241016
  Serious: No
  Sender: UCB
  Company Number: US-UCBSA-2024005644

PATIENT
  Age: 42 Year
  Sex: Male

DRUGS (10)
  1. MIDAZOLAM [Suspect]
     Active Substance: MIDAZOLAM
     Indication: Mania
     Dosage: 10 MILLIGRAM
  2. MIDAZOLAM [Suspect]
     Active Substance: MIDAZOLAM
     Indication: Off label use
  3. VALPROIC ACID [Concomitant]
     Active Substance: VALPROIC ACID
     Indication: Mania
     Dosage: UNK
  4. QUETIAPINE [Concomitant]
     Active Substance: QUETIAPINE
     Indication: Mania
     Dosage: UNK
  5. ESCITALOPRAM [Concomitant]
     Active Substance: ESCITALOPRAM OXALATE
     Indication: Mania
     Dosage: UNK
  6. DEPAKOTE [Concomitant]
     Active Substance: DIVALPROEX SODIUM
     Indication: Mania
     Dosage: UNK
  7. HALOPERIDOL [Concomitant]
     Active Substance: HALOPERIDOL
     Indication: Mania
     Dosage: 15 MILLIGRAM
  8. DIPHENHYDRAMINE [Concomitant]
     Active Substance: DIPHENHYDRAMINE
     Indication: Mania
     Dosage: 150 MILLIGRAM
  9. OLANZAPINE [Concomitant]
     Active Substance: OLANZAPINE
     Indication: Mania
     Dosage: 10 MILLIGRAM
  10. LORAZEPAM [Concomitant]
     Active Substance: LORAZEPAM
     Indication: Mania
     Dosage: 2 MILLIGRAM

REACTIONS (1)
  - No adverse event [Unknown]
